FAERS Safety Report 7717615-5 (Version None)
Quarter: 2011Q3

REPORT INFORMATION
  Report Type: 
  Country: None (occurrence: None)
  Receive Date: 20110824
  Receipt Date: 20110816
  Transmission Date: 20111222
  Serious: Yes (Hospitalization, Other)
  Sender: FDA-Public Use
  Company Number: ACO_22510_2011

PATIENT
  Age: 62 Year
  Sex: Female
  Weight: 83.9 kg

DRUGS (12)
  1. AMPYRA [Suspect]
  2. AMITRIPTYLINE HCL [Concomitant]
  3. AMPYRA [Suspect]
  4. AMPYRA [Suspect]
  5. VICODIN [Concomitant]
  6. AMPYRA [Suspect]
     Indication: ASTHENIA
     Dosage: 10 MG, BID, ORAL, 10 MG, QD, ORAL
     Route: 048
     Dates: start: 20110318, end: 20110101
  7. AMPYRA [Suspect]
     Indication: MULTIPLE SCLEROSIS
     Dosage: 10 MG, BID, ORAL, 10 MG, QD, ORAL
     Route: 048
     Dates: start: 20110318, end: 20110101
  8. AMPYRA [Suspect]
     Indication: GAIT DISTURBANCE
     Dosage: 10 MG, BID, ORAL, 10 MG, QD, ORAL
     Route: 048
     Dates: start: 20110318, end: 20110101
  9. AMPYRA [Suspect]
     Indication: ASTHENIA
     Dosage: 10 MG, BID, ORAL, 10 MG, QD, ORAL
     Route: 048
     Dates: start: 20100701, end: 20110317
  10. AMPYRA [Suspect]
     Indication: MULTIPLE SCLEROSIS
     Dosage: 10 MG, BID, ORAL, 10 MG, QD, ORAL
     Route: 048
     Dates: start: 20100701, end: 20110317
  11. AMPYRA [Suspect]
     Indication: GAIT DISTURBANCE
     Dosage: 10 MG, BID, ORAL, 10 MG, QD, ORAL
     Route: 048
     Dates: start: 20100701, end: 20110317
  12. HYDROCHLOROTHIAZIDE [Concomitant]

REACTIONS (4)
  - INAPPROPRIATE SCHEDULE OF DRUG ADMINISTRATION [None]
  - NEPHROLITHIASIS [None]
  - PAIN IN EXTREMITY [None]
  - INSOMNIA [None]
